FAERS Safety Report 9123611 (Version 1)
Quarter: 2013Q1

REPORT INFORMATION
  Report Type: Spontaneous
  Country: GB (occurrence: GB)
  Receive Date: 20130227
  Receipt Date: 20130227
  Transmission Date: 20140127
  Serious: Yes (Disabling, Other)
  Sender: FDA-Public Use
  Company Number: GB-009507513-1302GBR009024

PATIENT
  Age: 85 Year
  Sex: Female
  Weight: 50.8 kg

DRUGS (16)
  1. ALENDRONATE SODIUM [Suspect]
     Route: 048
  2. ATENOLOL [Concomitant]
     Dosage: UNK
     Dates: start: 20121018
  3. BECLOMETHASONE DIPROPIONATE [Concomitant]
     Dosage: UNK
     Dates: start: 20121018
  4. CALCIUM CARBONATE [Concomitant]
     Dosage: UNK
     Dates: start: 20121018
  5. CETIRIZINE HYDROCHLORIDE [Concomitant]
     Dosage: UNK
     Dates: start: 20121018
  6. ACETAMINOPHEN (+) CODEINE PHOSPHATE [Concomitant]
     Dosage: UNK
     Dates: start: 20121018
  7. FOLIC ACID [Concomitant]
     Dosage: UNK
     Dates: start: 20121018
  8. FUROSEMIDE [Concomitant]
     Dosage: UNK
     Dates: start: 20121018
  9. HYPROMELLOSE [Concomitant]
     Dosage: UNK
     Dates: start: 20121018
  10. INDAPAMIDE [Concomitant]
     Dosage: UNK
     Dates: start: 20121018
  11. MOLAXOLE [Concomitant]
     Dosage: UNK
     Dates: start: 20121115, end: 20121213
  12. MOVELAT [Concomitant]
     Dosage: UNK
     Dates: start: 20121115, end: 20121213
  13. NAPROXEN [Concomitant]
     Dosage: UNK
     Dates: start: 20121018
  14. OLANZAPINE [Concomitant]
     Dosage: UNK
     Dates: start: 20121018
  15. OMEPRAZOLE [Concomitant]
     Dosage: UNK
     Dates: start: 20121018
  16. ACETAMINOPHEN [Concomitant]
     Dosage: UNK
     Dates: start: 20130102, end: 20130130

REACTIONS (1)
  - Decreased appetite [Recovering/Resolving]
